FAERS Safety Report 6167574-4 (Version None)
Quarter: 2009Q2

REPORT INFORMATION
  Report Type: 
  Country: None (occurrence: None)
  Receive Date: 20090424
  Receipt Date: 20090126
  Transmission Date: 20091009
  Serious: No
  Sender: FDA-Public Use
  Company Number: US-BAYER-200910907BCC

PATIENT
  Age: 67 Year
  Sex: Female

DRUGS (6)
  1. ALEVE (CAPLET) [Suspect]
     Indication: DRUG USE FOR UNKNOWN INDICATION
     Dosage: TOTAL DAILY DOSE: 880 MG  UNIT DOSE: 220 MG
     Route: 048
     Dates: start: 20090126
  2. GLIPIZIDE [Concomitant]
     Route: 065
  3. GLUCOPHAGE [Concomitant]
     Route: 065
  4. LEVOTRHROID [Concomitant]
     Route: 065
  5. NORVASC [Concomitant]
     Route: 065
  6. MAXIDEX [Concomitant]
     Route: 065

REACTIONS (1)
  - NO ADVERSE EVENT [None]
